FAERS Safety Report 10223275 (Version 1)
Quarter: 2014Q2

REPORT INFORMATION
  Report Type: Spontaneous
  Country: US (occurrence: None)
  Receive Date: 20140605
  Receipt Date: 20140605
  Transmission Date: 20141212
  Serious: Yes (Hospitalization)
  Sender: FDA-Public Use
  Company Number: UNT-2014-001103

PATIENT
  Age: 29 Year
  Sex: Female
  Weight: 61.7 kg

DRUGS (3)
  1. REMODULIN [Suspect]
     Indication: PULMONARY ARTERIAL HYPERTENSION
     Dosage: 0.031 UG/KG/MIN, CONTINUING, IV DRIP
     Route: 041
     Dates: start: 20130211
  2. LETAIRIS (AMBRISENTAN) [Concomitant]
  3. WARFARIN (WARFARIN) [Concomitant]

REACTIONS (2)
  - Pulmonary arterial hypertension [None]
  - Condition aggravated [None]
